FAERS Safety Report 12280341 (Version 2)
Quarter: 2016Q2

REPORT INFORMATION
  Report Type: Spontaneous
  Country: US (occurrence: US)
  Receive Date: 20160419
  Receipt Date: 20160425
  Transmission Date: 20160815
  Serious: No
  Sender: FDA-Public Use
  Company Number: US-HORIZON-PEN-0181-2016

PATIENT
  Age: 51 Year
  Sex: Female

DRUGS (1)
  1. PENNSAID [Suspect]
     Active Substance: DICLOFENAC SODIUM
     Indication: OSTEOARTHRITIS
     Dosage: TWICE DAILY
     Dates: start: 20160407

REACTIONS (2)
  - Drug dose omission [Recovered/Resolved]
  - Intentional product misuse [Recovered/Resolved]
